FAERS Safety Report 7320254-1 (Version None)
Quarter: 2011Q1

REPORT INFORMATION
  Report Type: 
  Country: None (occurrence: None)
  Receive Date: 20110228
  Receipt Date: 20110201
  Transmission Date: 20110831
  Serious: No
  Sender: FDA-Public Use
  Company Number: US-B.I. PHARMACEUTICALS,INC./RIDGEFIELD-2010-BP-11235BP

PATIENT
  Age: 62 Year
  Sex: Male

DRUGS (1)
  1. MIRAPEX [Suspect]
     Indication: PARKINSON'S DISEASE
     Dosage: 1.875 MG
     Route: 048
     Dates: start: 20100101

REACTIONS (6)
  - EPIGASTRIC DISCOMFORT [None]
  - ABDOMINAL DISTENSION [None]
  - HYPOVENTILATION [None]
  - ANXIETY [None]
  - DYSPNOEA [None]
  - CHEST DISCOMFORT [None]
